FAERS Safety Report 9026963 (Version 1)
Quarter: 2013Q1

REPORT INFORMATION
  Report Type: Spontaneous
  Country: US (occurrence: US)
  Receive Date: 20130123
  Receipt Date: 20130123
  Transmission Date: 20140127
  Serious: No
  Sender: FDA-Public Use
  Company Number: US-TEVA-381602USA

PATIENT
  Sex: Female
  Weight: 74.46 kg

DRUGS (7)
  1. NUVIGIL [Suspect]
     Indication: SOMNOLENCE
  2. NUVIGIL [Suspect]
  3. SYNTHROID [Concomitant]
     Indication: HYPOTHYROIDISM
  4. TOPAMAX [Concomitant]
     Indication: MIGRAINE
  5. WELLBUTRIN [Concomitant]
     Indication: ANXIETY
  6. PRESCRIPTION MOTRIN [Concomitant]
     Indication: MIGRAINE
  7. CLARITIN [Concomitant]
     Indication: HYPERSENSITIVITY

REACTIONS (3)
  - Rash macular [Recovered/Resolved]
  - Somnolence [Recovered/Resolved]
  - Skin exfoliation [Recovered/Resolved]
